FAERS Safety Report 21054098 (Version 3)
Quarter: 2022Q3

REPORT INFORMATION
  Report Type: Spontaneous
  Country: FR (occurrence: FR)
  Receive Date: 20220707
  Receipt Date: 20220815
  Transmission Date: 20221026
  Serious: Yes (Other)
  Sender: FDA-Public Use
  Company Number: None

PATIENT
  Age: 72 Year
  Sex: Female
  Weight: 74 kg

DRUGS (14)
  1. ALLOPURINOL [Suspect]
     Active Substance: ALLOPURINOL
     Indication: Product used for unknown indication
     Dosage: 300 MILLIGRAM, QD
     Route: 048
     Dates: start: 202105
  2. VALACYCLOVIR HYDROCHLORIDE [Suspect]
     Active Substance: VALACYCLOVIR HYDROCHLORIDE
     Indication: Prophylaxis
     Dosage: 500 MILLIGRAM, QD
     Route: 048
     Dates: start: 202105
  3. ACETAMINOPHEN [Suspect]
     Active Substance: ACETAMINOPHEN
     Indication: Premedication
     Dosage: 1 GRAM, CYCLE
     Route: 048
     Dates: start: 20210526, end: 20210915
  4. METHYLPREDNISOLONE [Suspect]
     Active Substance: METHYLPREDNISOLONE
     Indication: Premedication
     Dosage: 120 MILLIGRAM, CYCLE
     Route: 042
     Dates: start: 20210526, end: 20210915
  5. DOXORUBICIN [Suspect]
     Active Substance: DOXORUBICIN
     Indication: B-cell lymphoma
     Dosage: 90 MILLIGRAM, CYCLE
     Route: 042
     Dates: start: 20210526, end: 20210915
  6. VINCRISTINE [Suspect]
     Active Substance: VINCRISTINE
     Indication: B-cell lymphoma
     Dosage: 2 MILLIGRAM, CYCLE
     Route: 042
     Dates: start: 20210526, end: 20210915
  7. MABTHERA [Suspect]
     Active Substance: RITUXIMAB
     Indication: B-cell lymphoma
     Dosage: 1 DOSAGE FORM, CYCLE
     Route: 058
     Dates: start: 20210526, end: 20210915
  8. MABTHERA [Suspect]
     Active Substance: RITUXIMAB
     Dosage: 1400 MILLIGRAM, CYCLE
     Route: 058
     Dates: start: 20210526, end: 20210915
  9. CYCLOPHOSPHAMIDE [Suspect]
     Active Substance: CYCLOPHOSPHAMIDE
     Indication: B-cell lymphoma
     Dosage: 1020 MILLIGRAM, CYCLE
     Route: 042
     Dates: start: 20210526, end: 20210915
  10. ONDANSETRON [Suspect]
     Active Substance: ONDANSETRON
     Indication: Premedication
     Dosage: 8 MILLIGRAM, CYCLE
     Route: 042
     Dates: start: 20210526, end: 20210915
  11. PREDNISONE [Suspect]
     Active Substance: PREDNISONE
     Indication: B-cell lymphoma
     Dosage: UNK
     Route: 048
     Dates: start: 20210527, end: 202109
  12. BACTRIM [Suspect]
     Active Substance: SULFAMETHOXAZOLE\TRIMETHOPRIM
     Indication: Prophylaxis
     Dosage: 3 DOSAGE FORM, QW
     Route: 048
     Dates: start: 202105
  13. BACTRIM [Suspect]
     Active Substance: SULFAMETHOXAZOLE\TRIMETHOPRIM
     Dosage: UNK, QW
     Route: 048
     Dates: start: 202105
  14. POLARAMINE [Suspect]
     Active Substance: DEXCHLORPHENIRAMINE MALEATE
     Indication: Premedication
     Dosage: 5 MILLIGRAM, CYCLE
     Route: 042
     Dates: start: 20210526, end: 20210915

REACTIONS (1)
  - Organising pneumonia [Not Recovered/Not Resolved]

NARRATIVE: CASE EVENT DATE: 20210918
